FAERS Safety Report 7955369 (Version 2)
Quarter: 2013Q2

REPORT INFORMATION
  Report Type: Report from Study
  Country: CA (occurrence: CA)
  Receive Date: 20110523
  Receipt Date: 20130508
  Transmission Date: 20140414
  Serious: Yes (Life-Threatening, Other)
  Sender: FDA-Public Use
  Company Number: PHHY2011CA16080

PATIENT
  Sex: Female

DRUGS (4)
  1. ACLASTA [Suspect]
     Indication: OSTEOPOROSIS
     Dosage: UNK
     Route: 042
     Dates: start: 20090422
  2. ACLASTA [Suspect]
     Dosage: UNK
     Route: 042
     Dates: start: 20100315
  3. ACLASTA [Suspect]
     Dosage: UNK
     Route: 042
     Dates: start: 20110520
  4. ACLASTA [Suspect]
     Dosage: UNK
     Route: 042
     Dates: start: 20120504

REACTIONS (7)
  - Terminal state [Unknown]
  - Liposarcoma [Unknown]
  - Depression [Unknown]
  - Gingival pain [Unknown]
  - Oral pain [Unknown]
  - Pain in extremity [Unknown]
  - Malaise [Unknown]
